FAERS Safety Report 18713512 (Version 2)
Quarter: 2021Q1

REPORT INFORMATION
  Report Type: Spontaneous
  Country: US (occurrence: US)
  Receive Date: 20210107
  Receipt Date: 20210330
  Transmission Date: 20210419
  Serious: No
  Sender: FDA-Public Use
  Company Number: US-TAKEDA-2021TUS000903

PATIENT
  Sex: Male
  Weight: 131 kg

DRUGS (2)
  1. MULTIVITAMINS;MINERALS [Concomitant]
     Active Substance: MINERALS\VITAMINS
     Indication: PRODUCT USED FOR UNKNOWN INDICATION
  2. GAMMAGARD [Suspect]
     Active Substance: HUMAN IMMUNOGLOBULIN G
     Indication: IMMUNODEFICIENCY
     Dosage: 45 GRAM, Q3WEEKS
     Route: 042
     Dates: start: 20200607

REACTIONS (2)
  - Inappropriate schedule of product administration [Unknown]
  - Treatment noncompliance [Unknown]
